FAERS Safety Report 9681808 (Version 2)
Quarter: 2013Q4

REPORT INFORMATION
  Report Type: Spontaneous
  Country: US (occurrence: US)
  Receive Date: 20131111
  Receipt Date: 20131220
  Transmission Date: 20140711
  Serious: Yes (Other)
  Sender: FDA-Public Use
  Company Number: US-PFIZER INC-2013319968

PATIENT
  Age: 61 Year
  Sex: Female
  Weight: 48.07 kg

DRUGS (3)
  1. DILANTIN-125 [Suspect]
     Indication: CONVULSION
     Dosage: 125 MG, UNK
     Dates: start: 1974
  2. MYSOLINE [Concomitant]
     Dosage: UNK
  3. VALIUM [Concomitant]
     Dosage: UNK

REACTIONS (1)
  - Thyroid disorder [Unknown]
